FAERS Safety Report 11540596 (Version 1)
Quarter: 2015Q3

REPORT INFORMATION
  Report Type: Spontaneous
  Country: US (occurrence: US)
  Receive Date: 20150923
  Receipt Date: 20150923
  Transmission Date: 20151125
  Serious: No
  Sender: FDA-Public Use
  Company Number: US-BEH-2015050613

PATIENT
  Sex: Female
  Weight: 70.3 kg

DRUGS (12)
  1. DIPHENHYDRAMINE. [Concomitant]
     Active Substance: DIPHENHYDRAMINE
     Dosage: 25 MG PRN ANA
     Route: 048
  2. SILVADENE [Concomitant]
     Active Substance: SILVER SULFADIAZINE
     Dosage: 1% BID UD
  3. ZITHROMAX [Concomitant]
     Active Substance: AZITHROMYCIN DIHYDRATE
     Dosage: 250 MG UD
  4. DESMOPRESSIN ACETATE. [Concomitant]
     Active Substance: DESMOPRESSIN ACETATE
     Dosage: 0.2 MG HS
     Route: 048
  5. PRIVIGEN [Suspect]
     Active Substance: HUMAN IMMUNOGLOBULIN G
     Indication: IMMUNODEFICIENCY COMMON VARIABLE
     Route: 042
  6. ACETAMINOPHEN. [Concomitant]
     Active Substance: ACETAMINOPHEN
     Dosage: 325 MG PRIOR
     Route: 048
  7. FLUDROCORTISONE [Concomitant]
     Active Substance: FLUDROCORTISONE
     Dosage: 0.1 MG DAILY
     Route: 048
  8. ALLEGRA [Concomitant]
     Active Substance: FEXOFENADINE HYDROCHLORIDE
     Dosage: 180 MG DAILY
     Route: 048
  9. NUVARING VAGINAL CREAM [Concomitant]
     Dosage: 1 DOSE Q 4 W
     Route: 067
  10. SODIUM CHLORIDE. [Concomitant]
     Active Substance: SODIUM CHLORIDE
     Dosage: 0.9% UD
     Route: 042
  11. ATIVAN [Concomitant]
     Active Substance: LORAZEPAM
     Dosage: 0.5MG QPM
     Route: 048
  12. EPIPEN [Concomitant]
     Active Substance: EPINEPHRINE
     Dosage: 0.3 MG PER ANA
     Route: 030

REACTIONS (2)
  - Sinusitis [Unknown]
  - Vomiting [Unknown]
